FAERS Safety Report 6200789-5 (Version None)
Quarter: 2009Q2

REPORT INFORMATION
  Report Type: 
  Country: None (occurrence: None)
  Receive Date: 20090522
  Receipt Date: 20080826
  Transmission Date: 20091009
  Serious: Yes (Hospitalization)
  Sender: FDA-Public Use
  Company Number: US-ALEXION-A200800173

PATIENT
  Sex: Male
  Weight: 92.517 kg

DRUGS (19)
  1. SOLIRIS [Suspect]
     Indication: PAROXYSMAL NOCTURNAL HAEMOGLOBINURIA
     Dosage: 600 MG, SINGLE
     Route: 042
     Dates: start: 20080424, end: 20080424
  2. SOLIRIS [Suspect]
     Dosage: 600 MG, SINGLE
     Route: 042
     Dates: start: 20080501, end: 20080501
  3. SOLIRIS [Suspect]
     Dosage: 600 MG, SINGLE
     Route: 042
     Dates: start: 20080507, end: 20080507
  4. SOLIRIS [Suspect]
     Dosage: 600 MG, SINGLE
     Route: 042
     Dates: start: 20080514, end: 20080514
  5. SOLIRIS [Suspect]
     Dosage: 900 MG, SINGLE
     Route: 042
     Dates: start: 20080521, end: 20080521
  6. SOLIRIS [Suspect]
     Dosage: 900 MG, SINGLE
     Route: 042
     Dates: start: 20080605, end: 20080605
  7. SOLIRIS [Suspect]
     Dosage: 900 MG, SINGLE
     Route: 042
     Dates: start: 20080619, end: 20080619
  8. SOLIRIS [Suspect]
     Dosage: 900 MG, SINGLE
     Route: 042
     Dates: start: 20080703, end: 20080703
  9. SOLIRIS [Suspect]
     Dosage: 900 MG, SINGLE
     Route: 042
     Dates: start: 20080725, end: 20080725
  10. FOLIC ACID [Concomitant]
     Dosage: 2 MG, QD
     Route: 048
  11. CALCIUM [Concomitant]
     Dosage: 650 MG, QD
  12. KEPPRA [Concomitant]
     Indication: CONVULSION
     Dosage: 500 MG, QD
     Route: 048
     Dates: start: 20080401
  13. PROTONIX                           /01263201/ [Concomitant]
     Dosage: 40 MG, BID
  14. PREDNISONE [Concomitant]
     Dosage: 30 MG, QD
  15. METOPROLOL SUCCINATE [Concomitant]
     Dosage: 50 MG, BID
  16. HYDROCHLOROTHIAZIDE [Concomitant]
     Dosage: 25 MG, QD
  17. POTASSIUM CHLORIDE [Concomitant]
     Dosage: 20 MEQ, QD
  18. ATARAX [Concomitant]
     Dosage: 25 MG, QID
  19. ZYRTEC [Concomitant]
     Dosage: 10 MG, QD

REACTIONS (5)
  - BLOOD LACTATE DEHYDROGENASE INCREASED [None]
  - DEEP VEIN THROMBOSIS [None]
  - DRUG DOSE OMISSION [None]
  - PULMONARY EMBOLISM [None]
  - RASH MACULO-PAPULAR [None]
